FAERS Safety Report 20752893 (Version 1)
Quarter: 2022Q2

REPORT INFORMATION
  Report Type: Spontaneous
  Country: US (occurrence: None)
  Receive Date: 20220426
  Receipt Date: 20220426
  Transmission Date: 20220720
  Serious: No
  Sender: FDA-Public Use
  Company Number: US-ROCHE-2939127

PATIENT
  Sex: Female

DRUGS (1)
  1. ESBRIET [Suspect]
     Active Substance: PIRFENIDONE
     Indication: Pulmonary fibrosis
     Dosage: 1 TABLET 3 TIMES A DAY FOR 7 DAYS, THEN 2 TABLETS 3 TIMES A DAY FOR 7 DAYS, THEN 3 TABLETS 3 TIMES A
     Route: 048
     Dates: start: 202109

REACTIONS (3)
  - Dizziness [Unknown]
  - Decreased appetite [Unknown]
  - Tremor [Unknown]
